FAERS Safety Report 7012960-3 (Version None)
Quarter: 2010Q3

REPORT INFORMATION
  Report Type: 
  Country: None (occurrence: None)
  Receive Date: 20100924
  Receipt Date: 20100914
  Transmission Date: 20110219
  Serious: Yes (Life-Threatening, Hospitalization)
  Sender: FDA-Public Use
  Company Number: CZ-JNJFOC-20100905820

PATIENT
  Sex: Male

DRUGS (4)
  1. REMICADE [Suspect]
     Indication: PSORIASIS
     Route: 042
  2. DITHIADEN [Concomitant]
     Indication: PREMEDICATION
  3. FLONIDAN [Concomitant]
     Indication: PREMEDICATION
  4. PREDNISONE TAB [Concomitant]
     Indication: PREMEDICATION

REACTIONS (6)
  - ANAPHYLACTIC REACTION [None]
  - ASTHENIA [None]
  - DYSPNOEA [None]
  - ERYTHEMA [None]
  - INFUSION RELATED REACTION [None]
  - NAUSEA [None]
